FAERS Safety Report 14100034 (Version 2)
Quarter: 2017Q4

REPORT INFORMATION
  Report Type: Spontaneous
  Country: US (occurrence: US)
  Receive Date: 20171017
  Receipt Date: 20171117
  Transmission Date: 20180321
  Serious: Yes (Other)
  Sender: FDA-Public Use
  Company Number: US-BAYER-2017-199473

PATIENT
  Age: 21 Year
  Sex: Female
  Weight: 93.88 kg

DRUGS (1)
  1. MIRENA [Suspect]
     Active Substance: LEVONORGESTREL
     Indication: UTERINE HAEMORRHAGE
     Dosage: 20 MCG/24HR, CONT
     Route: 015
     Dates: start: 20170831, end: 20171013

REACTIONS (5)
  - Off label use of device [None]
  - Device use issue [None]
  - Device dislocation [None]
  - Pain [None]
  - Genital haemorrhage [None]

NARRATIVE: CASE EVENT DATE: 2017
